FAERS Safety Report 19139274 (Version 1)
Quarter: 2021Q2

REPORT INFORMATION
  Report Type: Spontaneous
  Country: FR (occurrence: FR)
  Receive Date: 20210415
  Receipt Date: 20210415
  Transmission Date: 20210717
  Serious: Yes (Other)
  Sender: FDA-Public Use
  Company Number: FR-PFIZER INC-2021363264

PATIENT
  Age: 64 Year
  Sex: Female

DRUGS (2)
  1. ONCASPAR [Suspect]
     Active Substance: PEGASPARGASE
     Indication: ANGIOCENTRIC LYMPHOMA
     Dosage: 3340 IU, CYCLIC
     Route: 042
     Dates: start: 20210226, end: 20210226
  2. GEMCITABINE HYDROCHLORIDE. [Suspect]
     Active Substance: GEMCITABINE HYDROCHLORIDE
     Indication: ANGIOCENTRIC LYMPHOMA
     Dosage: 1670 MG, CYCLIC
     Route: 042
     Dates: start: 20210225, end: 20210225

REACTIONS (3)
  - Cholestatic liver injury [Not Recovered/Not Resolved]
  - Off label use [Unknown]
  - Pancreatitis acute [Recovering/Resolving]

NARRATIVE: CASE EVENT DATE: 20210225
